FAERS Safety Report 4581778-3 (Version None)
Quarter: 2005Q1

REPORT INFORMATION
  Report Type: 
  Country: None (occurrence: None)
  Receive Date: 20050127
  Receipt Date: 20040910
  Transmission Date: 20050727
  Serious: No
  Sender: FDA-Public Use
  Company Number: USA040977893

PATIENT
  Age: 10 Year
  Sex: Male
  Weight: 44 kg

DRUGS (2)
  1. STRATTERA [Suspect]
     Dosage: 18 MG/1 IN THE EVENING
     Dates: start: 20040908
  2. WELLBUTRIN [Concomitant]

REACTIONS (2)
  - SOMNOLENCE [None]
  - SUBCUTANEOUS NODULE [None]
